FAERS Safety Report 10070569 (Version 2)
Quarter: 2014Q2

REPORT INFORMATION
  Report Type: Report from Study
  Country: US (occurrence: US)
  Receive Date: 20140410
  Receipt Date: 20140423
  Transmission Date: 20141212
  Serious: Yes (Other)
  Sender: FDA-Public Use
  Company Number: US-JNJFOC-20140404596

PATIENT
  Sex: Male

DRUGS (4)
  1. INVOKANA [Suspect]
     Indication: TYPE 2 DIABETES MELLITUS
     Route: 048
     Dates: start: 201309
  2. NYSTATIN [Suspect]
     Indication: GENITAL RASH
  3. NYSTATIN [Suspect]
     Indication: GENITAL DISCHARGE
  4. NYSTATIN [Suspect]
     Indication: GENITAL SWELLING

REACTIONS (9)
  - Urinary incontinence [Not Recovered/Not Resolved]
  - Protein albumin ratio [Not Recovered/Not Resolved]
  - Renal impairment [Unknown]
  - Urine protein, quantitative [Not Recovered/Not Resolved]
  - Genital discharge [Not Recovered/Not Resolved]
  - Blood creatinine increased [Unknown]
  - Weight decreased [Unknown]
  - Genital swelling [Not Recovered/Not Resolved]
  - Genital rash [Not Recovered/Not Resolved]
